FAERS Safety Report 7220381-3 (Version None)
Quarter: 2011Q1

REPORT INFORMATION
  Report Type: 
  Country: None (occurrence: None)
  Receive Date: 20110111
  Receipt Date: 20110107
  Transmission Date: 20110831
  Serious: Yes (Hospitalization, Other)
  Sender: FDA-Public Use
  Company Number: US-AMGEN-USASP2011001021

PATIENT

DRUGS (2)
  1. ARANESP [Suspect]
     Indication: RENAL FAILURE CHRONIC
  2. ARANESP [Suspect]
     Indication: MYELODYSPLASTIC SYNDROME

REACTIONS (3)
  - HAEMOGLOBIN DECREASED [None]
  - HOSPITALISATION [None]
  - HAEMOGLOBIN INCREASED [None]
